FAERS Safety Report 20810779 (Version 1)
Quarter: 2022Q2

REPORT INFORMATION
  Report Type: Spontaneous
  Country: US (occurrence: US)
  Receive Date: 20220510
  Receipt Date: 20220510
  Transmission Date: 20220721
  Serious: No
  Sender: FDA-Public Use
  Company Number: US-PFIZER INC-202200028996

PATIENT
  Age: 65 Year
  Sex: Female
  Weight: 119.75 kg

DRUGS (2)
  1. ZOLOFT [Suspect]
     Active Substance: SERTRALINE HYDROCHLORIDE
     Indication: Depression
     Dosage: 25 MG, DAILY (1.5 TABLETS EVERY DAY)
     Route: 048
     Dates: start: 2001
  2. ZOLOFT [Suspect]
     Active Substance: SERTRALINE HYDROCHLORIDE
     Indication: Anxiety
     Dosage: 1.5 DF, 1X/DAY, [SIG: TAKE 1 1/2 TAB ONCE A DAY #135 X 90 DAYS]

REACTIONS (2)
  - Wrong technique in product usage process [Unknown]
  - Drug ineffective [Unknown]
